FAERS Safety Report 9695099 (Version 1)
Quarter: 2013Q4

REPORT INFORMATION
  Report Type: Spontaneous
  Country: DE (occurrence: DE)
  Receive Date: 20131119
  Receipt Date: 20131119
  Transmission Date: 20140711
  Serious: Yes (Congenital Anomaly)
  Sender: FDA-Public Use
  Company Number: GXKR2013DE003581

PATIENT
  Sex: 0

DRUGS (4)
  1. CARBAMAZEPINE [Suspect]
     Indication: EPILEPSY
     Dosage: MATERNAL DOSE: 450 [MG/D ]
     Route: 064
  2. RIVOTRIL [Suspect]
     Indication: EPILEPSY
     Dosage: MATERNAL DOSE: 1 [MG/D ]
     Route: 064
  3. PRESINOL [Concomitant]
     Indication: HYPERTENSION
     Dosage: MATERNAL DOSE: 750 [MG/D ]/ 500-0-250MG/D
     Route: 064
  4. FOLSAEURE [Concomitant]
     Indication: PROPHYLAXIS OF NEURAL TUBE DEFECT
     Dosage: MATERNAL DOSE: 0.8 [MG/D ]
     Route: 064

REACTIONS (1)
  - Polydactyly [Unknown]
